FAERS Safety Report 9338855 (Version 1)
Quarter: 2013Q2

REPORT INFORMATION
  Report Type: Spontaneous
  Country: US (occurrence: None)
  Receive Date: 20130606
  Receipt Date: 20130606
  Transmission Date: 20140414
  Serious: Yes (Other)
  Sender: FDA-Public Use
  Company Number: None

PATIENT
  Sex: 0

DRUGS (1)
  1. RECLAST [Suspect]
     Dates: start: 20110926, end: 20110926

REACTIONS (5)
  - Pain [None]
  - Movement disorder [None]
  - Blindness [None]
  - Blindness unilateral [None]
  - Visual acuity reduced [None]
